FAERS Safety Report 19254054 (Version 7)
Quarter: 2022Q4

REPORT INFORMATION
  Report Type: Spontaneous
  Country: US (occurrence: US)
  Receive Date: 20210513
  Receipt Date: 20221220
  Transmission Date: 20230112
  Serious: Yes (Other)
  Sender: FDA-Public Use
  Company Number: US-SA-SAC20210511000105

PATIENT
  Age: 15 Year
  Sex: Male
  Weight: 117 kg

DRUGS (13)
  1. ALDURAZYME [Suspect]
     Active Substance: LARONIDASE
     Indication: Mucopolysaccharidosis
     Dosage: 66.7 MG, QW
     Route: 042
     Dates: start: 20100128
  2. IRBESARTAN [Concomitant]
     Active Substance: IRBESARTAN
  3. NORCO [Concomitant]
     Active Substance: ACETAMINOPHEN\HYDROCODONE BITARTRATE
  4. DIPHENHYDRAMINE [Concomitant]
     Active Substance: DIPHENHYDRAMINE
  5. HEPARIN [Concomitant]
     Active Substance: HEPARIN SODIUM
  6. SODIUM CHLORIDE [Concomitant]
     Active Substance: SODIUM CHLORIDE
  7. FLUTICASONE PROPIONATE [Concomitant]
     Active Substance: FLUTICASONE PROPIONATE
  8. LORATADINE [Concomitant]
     Active Substance: LORATADINE
  9. VYVANSE [Concomitant]
     Active Substance: LISDEXAMFETAMINE DIMESYLATE
  10. NAPROXEN [Concomitant]
     Active Substance: NAPROXEN
  11. TYLENOL WITH CODEINE [Concomitant]
     Active Substance: ACETAMINOPHEN\CODEINE PHOSPHATE
  12. EPINEPHRINE [Concomitant]
     Active Substance: EPINEPHRINE
  13. LIDOCAINE [Concomitant]
     Active Substance: LIDOCAINE

REACTIONS (9)
  - Pneumonia [Unknown]
  - Productive cough [Unknown]
  - Lower respiratory tract infection [Unknown]
  - Cough [Unknown]
  - Nausea [Unknown]
  - Vomiting [Unknown]
  - Bronchitis [Unknown]
  - Diarrhoea [Unknown]
  - Surgery [Unknown]

NARRATIVE: CASE EVENT DATE: 20210422
